FAERS Safety Report 21884600 (Version 1)
Quarter: 2023Q1

REPORT INFORMATION
  Report Type: Spontaneous
  Country: US (occurrence: US)
  Receive Date: 20230119
  Receipt Date: 20230119
  Transmission Date: 20230418
  Serious: No
  Sender: FDA-Public Use
  Company Number: US-AMNEAL PHARMACEUTICALS-2022-AMRX-01430

PATIENT
  Sex: Male

DRUGS (1)
  1. SILODOSIN [Suspect]
     Active Substance: SILODOSIN
     Indication: Prostate infection
     Dosage: 4 MILLIGRAM, DAILY
     Route: 048
     Dates: start: 202202

REACTIONS (1)
  - Nasal congestion [Not Recovered/Not Resolved]
